FAERS Safety Report 8154980-1 (Version None)
Quarter: 2012Q1

REPORT INFORMATION
  Report Type: 
  Country: None (occurrence: None)
  Receive Date: 20120221
  Receipt Date: 20120215
  Transmission Date: 20120608
  Serious: Yes (Hospitalization, Other)
  Sender: FDA-Public Use
  Company Number: PHEH2011US08449

PATIENT
  Sex: Female
  Weight: 40 kg

DRUGS (9)
  1. EXJADE [Suspect]
     Dosage: 1000 MG, DAILY
     Route: 048
  2. SUSTIVA [Concomitant]
     Dosage: 600 MG, DAILY
     Route: 048
  3. DIDANOSINE [Concomitant]
     Indication: HIV INFECTION
     Dosage: 250 MG, DAILY
     Route: 048
  4. DOCUSATE [Concomitant]
     Indication: CONSTIPATION
     Dosage: 600 MG,DAILY
     Route: 048
  5. PENICILLIN [Concomitant]
     Dosage: 250 MG, BID
     Route: 048
  6. SERTRALINE HYDROCHLORIDE [Concomitant]
     Indication: DEPRESSION
     Dosage: 100 MG,DAILY
     Route: 048
  7. EXJADE [Suspect]
     Indication: SICKLE CELL ANAEMIA
     Dosage: 1000 MG, DAILY
     Route: 048
     Dates: start: 20060907
  8. LAMIVUDINE [Concomitant]
     Indication: HIV INFECTION
     Dosage: 1 U, BID
     Route: 048
  9. ZIDOVUDINE [Concomitant]
     Indication: HIV INFECTION
     Dosage: 01 U, BID
     Route: 048

REACTIONS (8)
  - DIARRHOEA [None]
  - SICKLE CELL ANAEMIA WITH CRISIS [None]
  - HAEMOGLOBIN DECREASED [None]
  - HEPATOSPLENOMEGALY [None]
  - PAIN [None]
  - SPLENOMEGALY [None]
  - ABDOMINAL PAIN [None]
  - VOMITING [None]
